FAERS Safety Report 8408162 (Version 2)
Quarter: 2012Q4

REPORT INFORMATION
  Report Type: 
  Country: DE (occurrence: DE)
  Receive Date: 20120216
  Receipt Date: 20121031
  Transmission Date: 20130627
  Serious: Yes (Death, Life-Threatening, Hospitalization, Other)
  Sender: FDA-Public Use
  Company Number: DE-RANBAXY-2012RR-52490

PATIENT
  Age: 78 Year
  Sex: Female
  Weight: 76 kg

DRUGS (2)
  1. CEFUROXIME [Suspect]
     Indication: SKIN ULCER
     Dosage: UNK
     Route: 065
     Dates: start: 20110930, end: 20110930
  2. CIPROBAY [Suspect]
     Indication: SKIN ULCER
     Dosage: 500-1000 mg/day
     Route: 048
     Dates: start: 20110930, end: 20111004

REACTIONS (1)
  - Renal failure acute [Recovered/Resolved]
